FAERS Safety Report 18642898 (Version 1)
Quarter: 2020Q4

REPORT INFORMATION
  Report Type: Spontaneous
  Country: US (occurrence: US)
  Receive Date: 20201220
  Receipt Date: 20201220
  Transmission Date: 20210114
  Serious: No
  Sender: FDA-Public Use
  Company Number: None

PATIENT
  Age: 55 Year
  Sex: Male
  Weight: 60.75 kg

DRUGS (7)
  1. ALBUTEROL. [Concomitant]
     Active Substance: ALBUTEROL
  2. GLUCOSAMINE [Concomitant]
     Active Substance: GLUCOSAMINE
  3. FISH OIL [Concomitant]
     Active Substance: FISH OIL
  4. CHANTIX [Suspect]
     Active Substance: VARENICLINE TARTRATE
     Indication: SMOKING CESSATION THERAPY
     Dosage: ?          QUANTITY:1 TABLET(S);?
     Route: 048
     Dates: start: 20140302, end: 20140307
  5. MULTI VITAMIN [Concomitant]
     Active Substance: VITAMINS
  6. NOOTROPIC [Concomitant]
  7. UBIQUINOL [Concomitant]
     Active Substance: UBIQUINOL

REACTIONS (4)
  - Malaise [None]
  - Homicidal ideation [None]
  - Irritability [None]
  - Feeling abnormal [None]

NARRATIVE: CASE EVENT DATE: 20140302
